FAERS Safety Report 9838029 (Version 1)
Quarter: 2013Q4

REPORT INFORMATION
  Report Type: Spontaneous
  Country: US (occurrence: None)
  Receive Date: 20131205
  Receipt Date: 20131205
  Transmission Date: 20140711
  Serious: No
  Sender: FDA-Public Use
  Company Number: 163-POMAL-13111215

PATIENT
  Age: 77 Year
  Sex: Female

DRUGS (4)
  1. POMALYST (POMALIDOMIDE) (CAPSULES) [Suspect]
     Indication: PLASMA CELL MYELOMA
     Dosage: 4MG, 1 IN 1 D, PO
     Dates: start: 20131022
  2. METHADONE HYDROCHLORIDE) (UNKNOWN) [Concomitant]
  3. NEURONTIN (GABAPENTIN) (UNKNOWN) [Concomitant]
  4. LINZESS (LINACLOTIDE) [Concomitant]

REACTIONS (4)
  - Hyperhidrosis [None]
  - Nasal congestion [None]
  - Dyspnoea [None]
  - Oedema peripheral [None]
